FAERS Safety Report 23563712 (Version 12)
Quarter: 2025Q3

REPORT INFORMATION
  Report Type: Report from Study
  Country: US (occurrence: US)
  Receive Date: 20240226
  Receipt Date: 20250819
  Transmission Date: 20251021
  Serious: Yes (Hospitalization, Other)
  Sender: TAKEDA
  Company Number: US-TAKEDA-2024TUS001207

PATIENT
  Age: 34 Year
  Sex: Female
  Weight: 70 kg

DRUGS (51)
  1. HUMAN IMMUNOGLOBULIN G [Suspect]
     Active Substance: HUMAN IMMUNOGLOBULIN G
     Indication: Acute lymphocytic leukaemia recurrent
  2. HUMAN IMMUNOGLOBULIN G [Suspect]
     Active Substance: HUMAN IMMUNOGLOBULIN G
     Indication: Anaemia
     Dosage: UNK UNK, Q4WEEKS
  3. HUMAN IMMUNOGLOBULIN G [Suspect]
     Active Substance: HUMAN IMMUNOGLOBULIN G
  4. HUMAN IMMUNOGLOBULIN G [Suspect]
     Active Substance: HUMAN IMMUNOGLOBULIN G
     Dosage: UNK UNK, Q3WEEKS
  5. HUMAN IMMUNOGLOBULIN G [Suspect]
     Active Substance: HUMAN IMMUNOGLOBULIN G
  6. HUMAN IMMUNOGLOBULIN G [Suspect]
     Active Substance: HUMAN IMMUNOGLOBULIN G
     Dosage: 40 GRAM, QOD
  7. HUMAN IMMUNOGLOBULIN G [Suspect]
     Active Substance: HUMAN IMMUNOGLOBULIN G
     Dosage: 40 GRAM, Q3WEEKS
  8. HUMAN IMMUNOGLOBULIN G [Suspect]
     Active Substance: HUMAN IMMUNOGLOBULIN G
  9. EPINEPHRINE [Concomitant]
     Active Substance: EPINEPHRINE
  10. ACETAMINOPHEN [Concomitant]
     Active Substance: ACETAMINOPHEN
  11. CRESTOR [Concomitant]
     Active Substance: ROSUVASTATIN CALCIUM
  12. LEVOTHYROXINE SODIUM [Concomitant]
     Active Substance: LEVOTHYROXINE SODIUM
  13. DILAUDID [Concomitant]
     Active Substance: HYDROMORPHONE HYDROCHLORIDE
  14. SODIUM CHLORIDE [Concomitant]
     Active Substance: SODIUM CHLORIDE
  15. KEPPRA [Concomitant]
     Active Substance: LEVETIRACETAM
  16. LYRICA [Concomitant]
     Active Substance: PREGABALIN
  17. LIDOCAINE [Concomitant]
     Active Substance: LIDOCAINE
  18. EPIPEN [Concomitant]
     Active Substance: EPINEPHRINE
  19. ALBUTEROL SULFATE [Concomitant]
     Active Substance: ALBUTEROL SULFATE
  20. HEPARIN SODIUM [Concomitant]
     Active Substance: HEPARIN SODIUM
  21. ZOSTRIX HP [Concomitant]
     Active Substance: CAPSAICIN
  22. CORTEF [Concomitant]
     Active Substance: HYDROCORTISONE
  23. DIPHENHYDRAMINE HYDROCHLORIDE [Concomitant]
     Active Substance: DIPHENHYDRAMINE HYDROCHLORIDE
  24. SODIUM CHLORIDE [Concomitant]
     Active Substance: SODIUM CHLORIDE
  25. ACYCLOVIR [Concomitant]
     Active Substance: ACYCLOVIR
  26. CYMBALTA [Concomitant]
     Active Substance: DULOXETINE HYDROCHLORIDE
  27. VITAMIN B1 [Concomitant]
     Active Substance: THIAMINE HYDROCHLORIDE
  28. VITAMIN B6 [Concomitant]
     Active Substance: PYRIDOXINE HYDROCHLORIDE
  29. FLUBLOK QUADRIVALENT NOS [Concomitant]
     Active Substance: INFLUENZA VIRUS VACCINE
  30. ALBUTEROL [Concomitant]
     Active Substance: ALBUTEROL
  31. HEPARIN [Concomitant]
     Active Substance: HEPARIN SODIUM
  32. VOLTAREN [Concomitant]
     Active Substance: DICLOFENAC SODIUM
  33. LORAZEPAM [Concomitant]
     Active Substance: LORAZEPAM
  34. TOLTERODINE TARTRATE [Concomitant]
     Active Substance: TOLTERODINE TARTRATE
  35. HYDROCORTISONE [Concomitant]
     Active Substance: HYDROCORTISONE
  36. FAMOTIDINE [Concomitant]
     Active Substance: FAMOTIDINE
  37. MELATONIN [Concomitant]
     Active Substance: MELATONIN
  38. VITAMIN C [Concomitant]
     Active Substance: ASCORBIC ACID
  39. TRAZODONE [Concomitant]
     Active Substance: TRAZODONE HYDROCHLORIDE
  40. HIPREX [Concomitant]
     Active Substance: METHENAMINE HIPPURATE
  41. THIAMINE [Concomitant]
     Active Substance: THIAMINE
  42. DIPHENHYDRAMINE [Concomitant]
     Active Substance: DIPHENHYDRAMINE
  43. VITAMIN B [Concomitant]
     Active Substance: VITAMIN B
  44. THIAMINE HYDROCHLORIDE [Concomitant]
     Active Substance: THIAMINE HYDROCHLORIDE
  45. METHYLPREDNISOLONE [Concomitant]
     Active Substance: METHYLPREDNISOLONE
  46. TRAZODONE HCL [Concomitant]
     Active Substance: TRAZODONE HYDROCHLORIDE
  47. ICY HOT [Concomitant]
     Active Substance: LIDOCAINE\MENTHOL
  48. Arthritis Pain [Concomitant]
  49. VOLTAREN ARTHRITIS PAIN [Concomitant]
     Active Substance: DICLOFENAC SODIUM
  50. METHADONE HYDROCHLORIDE [Concomitant]
     Active Substance: METHADONE HYDROCHLORIDE
  51. DEFERASIROX [Concomitant]
     Active Substance: DEFERASIROX

REACTIONS (29)
  - Sepsis [Unknown]
  - Infection [Unknown]
  - Urinary retention [Unknown]
  - Urinary tract infection [Unknown]
  - Neuropathy peripheral [Recovered/Resolved]
  - Diarrhoea [Unknown]
  - Motor dysfunction [Unknown]
  - Hypersomnia [Unknown]
  - Urine output decreased [Unknown]
  - Product use in unapproved indication [Unknown]
  - Chromaturia [Unknown]
  - Abnormal behaviour [Unknown]
  - Bedridden [Unknown]
  - Musculoskeletal pain [Unknown]
  - Skin discolouration [Unknown]
  - Blood pressure decreased [Unknown]
  - Blood iron increased [Unknown]
  - Gait inability [Unknown]
  - Weight decreased [Unknown]
  - Lethargy [Unknown]
  - Infusion site pruritus [Unknown]
  - Pyrexia [Unknown]
  - Tachycardia [Unknown]
  - Headache [Unknown]
  - Nausea [Unknown]
  - Vomiting [Unknown]
  - Abdominal pain [Unknown]
  - Rash [Unknown]
  - Tremor [Unknown]

NARRATIVE: CASE EVENT DATE: 20231003
